FAERS Safety Report 5079331-0 (Version None)
Quarter: 2006Q3

REPORT INFORMATION
  Report Type: 
  Country: None (occurrence: None)
  Receive Date: 20060814
  Receipt Date: 20060725
  Transmission Date: 20061208
  Serious: Yes (Other)
  Sender: FDA-Public Use
  Company Number: PHNR2006AU00968

PATIENT
  Sex: Male

DRUGS (6)
  1. CAFERGOT [Suspect]
     Dosage: 0.5 - 1 SUPPOSITORY/NIGHT, { 5 TIMES/WEEK
     Route: 054
  2. ACETAMINOPHEN W/ CODEINE [Concomitant]
     Dosage: 4-6/DAY
  3. SANDOMIGRAN [Concomitant]
     Dosage: 2 TABLETS/DAY
  4. EZETROL [Concomitant]
     Dosage: 1 TABLET/DAY
  5. ENDEP [Concomitant]
     Dosage: 50MG/DAY
  6. POLARAMINE [Concomitant]

REACTIONS (3)
  - DRUG DEPENDENCE [None]
  - NEOPLASM MALIGNANT [None]
  - VASCULAR BYPASS GRAFT [None]
